FAERS Safety Report 10024626 (Version 1)
Quarter: 2014Q1

REPORT INFORMATION
  Report Type: Spontaneous
  Country: US (occurrence: None)
  Receive Date: 20140319
  Receipt Date: 20140319
  Transmission Date: 20141002
  Serious: Yes (Life-Threatening, Hospitalization, Disabling)
  Sender: FDA-Public Use
  Company Number: None

PATIENT
  Age: 53 Year
  Sex: Male
  Weight: 70.76 kg

DRUGS (5)
  1. ATRIPLA [Suspect]
     Dosage: 1 PILL QHS/BEDTIME ORAL
     Route: 048
  2. NYSTATIN [Concomitant]
  3. BETAMETHASONE [Concomitant]
  4. DIPROPIONATE [Concomitant]
  5. ZOFRAN [Concomitant]

REACTIONS (5)
  - Rash [None]
  - Liver function test abnormal [None]
  - Aspartate aminotransferase increased [None]
  - Alanine aminotransferase increased [None]
  - Blood bilirubin increased [None]
